FAERS Safety Report 10214963 (Version 1)
Quarter: 2014Q2

REPORT INFORMATION
  Report Type: Spontaneous
  Country: US (occurrence: US)
  Receive Date: 20140603
  Receipt Date: 20140603
  Transmission Date: 20141212
  Serious: No
  Sender: FDA-Public Use
  Company Number: US-ASTRAZENECA-2014SE35948

PATIENT
  Age: 80 Year
  Sex: Female

DRUGS (8)
  1. NEXIUM [Suspect]
     Indication: GASTROOESOPHAGEAL REFLUX DISEASE
     Route: 048
  2. HYDROCODONE [Concomitant]
     Indication: ARTHRALGIA
     Dosage: 7.5 325 Q8H
     Route: 048
  3. HYDROCODONE [Concomitant]
     Indication: ARTHRALGIA
     Dosage: 7.5 325 Q8H
     Route: 048
  4. HYDROCODONE [Concomitant]
     Indication: BACK PAIN
     Dosage: 7.5 325 Q8H
     Route: 048
  5. CLONAZEPAM [Concomitant]
     Indication: SLEEP DISORDER
     Route: 048
  6. TRAZODONE [Concomitant]
     Indication: RELAXATION THERAPY
     Route: 048
  7. BENICAR [Concomitant]
     Indication: BLOOD PRESSURE ABNORMAL
     Dosage: 40 25 MG DAILY
     Route: 048
  8. MELOXICAM [Concomitant]
     Indication: CARDIOVASCULAR DISORDER
     Route: 048

REACTIONS (9)
  - Hip deformity [Not Recovered/Not Resolved]
  - Back pain [Not Recovered/Not Resolved]
  - Influenza like illness [Recovered/Resolved]
  - Body height decreased [Not Recovered/Not Resolved]
  - Arthropathy [Not Recovered/Not Resolved]
  - Arthropathy [Not Recovered/Not Resolved]
  - Vomiting [Recovered/Resolved]
  - Malaise [Recovered/Resolved]
  - Drug dose omission [Recovered/Resolved]
